FAERS Safety Report 4636012-2 (Version None)
Quarter: 2005Q2

REPORT INFORMATION
  Report Type: 
  Country: None (occurrence: None)
  Receive Date: 20050331
  Receipt Date: 20040116
  Transmission Date: 20051028
  Serious: Yes (Other)
  Sender: FDA-Public Use
  Company Number: 200410301BCC

PATIENT
  Age: 83 Year
  Sex: Male
  Weight: 68.9467 kg

DRUGS (1)
  1. ALEVE [Suspect]
     Indication: PAIN
     Dosage: 220 MG, BID, ORAL
     Route: 048
     Dates: start: 20040104, end: 20040113

REACTIONS (1)
  - HAEMATOCHEZIA [None]
